FAERS Safety Report 15570501 (Version 2)
Quarter: 2018Q4

REPORT INFORMATION
  Report Type: Spontaneous
  Country: US (occurrence: US)
  Receive Date: 20181031
  Receipt Date: 20181108
  Transmission Date: 20190205
  Serious: Yes (Other)
  Sender: FDA-Public Use
  Company Number: US-BEH-2018096246

PATIENT
  Age: 44 Year
  Sex: Female

DRUGS (1)
  1. HUMATE-P [Suspect]
     Active Substance: HUMAN COAGULATION FACTOR VIII/VON WILLEBRAND FACTOR COMPLEX
     Indication: COAGULOPATHY
     Dosage: 6880 IU, PRN
     Route: 042
     Dates: start: 20141113

REACTIONS (1)
  - Ovarian cancer [Unknown]
